FAERS Safety Report 20783590 (Version 1)
Quarter: 2022Q2

REPORT INFORMATION
  Report Type: Report from Study
  Country: CA (occurrence: CA)
  Receive Date: 20220504
  Receipt Date: 20220504
  Transmission Date: 20220720
  Serious: Yes (Death)
  Sender: FDA-Public Use
  Company Number: CA-NOVARTISPH-PHHY2015CA009656

PATIENT
  Age: 67 Year
  Sex: Male

DRUGS (5)
  1. GLEEVEC [Suspect]
     Active Substance: IMATINIB MESYLATE
     Indication: Chronic myeloid leukaemia
     Dosage: 400 MG, QD
     Route: 048
     Dates: start: 20150126
  2. CIPRALEX [Concomitant]
     Active Substance: ESCITALOPRAM OXALATE
     Indication: Product used for unknown indication
     Route: 065
  3. LEVEMIR [Concomitant]
     Active Substance: INSULIN DETEMIR
     Indication: Diabetes mellitus
     Dosage: UNK
     Route: 065
  4. INSULIN NOS [Concomitant]
     Active Substance: INSULIN NOS
     Indication: Diabetes mellitus
     Dosage: UNK
     Route: 065
  5. LEVODOPA [Concomitant]
     Active Substance: LEVODOPA
     Indication: Parkinson^s disease
     Dosage: 5 DF, UNK
     Route: 065

REACTIONS (21)
  - Death [Fatal]
  - Blood glucose decreased [Unknown]
  - Blood glucose fluctuation [Unknown]
  - Sleep apnoea syndrome [Unknown]
  - Feeling abnormal [Unknown]
  - Snoring [Unknown]
  - Eye disorder [Unknown]
  - Skin disorder [Recovered/Resolved]
  - Sunburn [Unknown]
  - Muscle spasms [Recovering/Resolving]
  - Fluid retention [Unknown]
  - Swelling face [Unknown]
  - Weight increased [Unknown]
  - Dizziness [Unknown]
  - Fatigue [Unknown]
  - Somnolence [Unknown]
  - Headache [Unknown]
  - Memory impairment [Unknown]
  - Alopecia [Unknown]
  - Muscular weakness [Unknown]
  - Drug ineffective [Unknown]

NARRATIVE: CASE EVENT DATE: 20150130
